FAERS Safety Report 19045452 (Version 1)
Quarter: 2021Q1

REPORT INFORMATION
  Report Type: Spontaneous
  Country: US (occurrence: US)
  Receive Date: 20210322
  Receipt Date: 20210322
  Transmission Date: 20210420
  Serious: No
  Sender: FDA-Public Use
  Company Number: US-GALDERMA-US2020052658

PATIENT
  Age: 15 Year
  Sex: Male

DRUGS (3)
  1. PROACTIV MD ADAPALENE ACNE TREATMENT [Suspect]
     Active Substance: ADAPALENE
     Indication: ACNE
     Dosage: 0.1%
     Route: 061
  2. PROACTIV DAILY OIL CONTROL [Concomitant]
     Indication: ACNE
     Route: 061
  3. PROACTIV ADVANCED DARK SPOT CORRECTING SERUM [Concomitant]
     Active Substance: HYDROQUINONE
     Indication: ACNE
     Route: 061

REACTIONS (1)
  - Drug ineffective [Unknown]
